FAERS Safety Report 24019542 (Version 7)
Quarter: 2025Q2

REPORT INFORMATION
  Report Type: Report from Study
  Country: CA (occurrence: CA)
  Receive Date: 20240627
  Receipt Date: 20250520
  Transmission Date: 20250717
  Serious: Yes (Other)
  Sender: JOHNSON AND JOHNSON
  Company Number: CA-JNJFOC-20240660297

PATIENT
  Age: 9 Year
  Sex: Male

DRUGS (8)
  1. REMICADE [Suspect]
     Active Substance: INFLIXIMAB
     Indication: Crohn^s disease
     Dosage: 24E107 EXP. 05/27
     Route: 041
     Dates: start: 20161025
  2. REMICADE [Suspect]
     Active Substance: INFLIXIMAB
     Route: 041
  3. REMICADE [Suspect]
     Active Substance: INFLIXIMAB
     Route: 041
     Dates: start: 20080429
  4. REMICADE [Suspect]
     Active Substance: INFLIXIMAB
     Route: 041
  5. REMICADE [Suspect]
     Active Substance: INFLIXIMAB
     Route: 041
  6. BUPROPION [Suspect]
     Active Substance: BUPROPION
     Indication: Panic attack
     Route: 065
  7. METHOTREXATE [Concomitant]
     Active Substance: METHOTREXATE
     Indication: Product used for unknown indication
  8. FOLIC ACID [Concomitant]
     Active Substance: FOLIC ACID
     Indication: Product used for unknown indication

REACTIONS (19)
  - Panic attack [Recovered/Resolved]
  - Hyperhidrosis [Recovered/Resolved]
  - Palpitations [Not Recovered/Not Resolved]
  - Infusion related reaction [Recovered/Resolved]
  - Dizziness [Not Recovered/Not Resolved]
  - Hypertension [Recovered/Resolved]
  - Abdominal discomfort [Recovered/Resolved]
  - Chest pain [Recovered/Resolved]
  - Mental disorder [Not Recovered/Not Resolved]
  - Inflammation [Unknown]
  - Weight decreased [Unknown]
  - Tooth extraction [Recovered/Resolved]
  - Glossitis [Recovered/Resolved]
  - Tremor [Recovered/Resolved]
  - Pallor [Recovered/Resolved]
  - Rash [Recovered/Resolved]
  - Dyspnoea [Not Recovered/Not Resolved]
  - Inappropriate schedule of product administration [Unknown]
  - Off label use [Unknown]

NARRATIVE: CASE EVENT DATE: 20080429
